FAERS Safety Report 4689147-2 (Version None)
Quarter: 2005Q2

REPORT INFORMATION
  Report Type: 
  Country: None (occurrence: None)
  Receive Date: 20050613
  Receipt Date: 20050523
  Transmission Date: 20051028
  Serious: Yes (Life-Threatening, Hospitalization, Disabling)
  Sender: FDA-Public Use
  Company Number: 2005GB01024

PATIENT
  Age: 61 Year
  Sex: Male

DRUGS (8)
  1. OMEPRAZOLE [Suspect]
     Indication: REFLUX OESOPHAGITIS
     Route: 048
     Dates: start: 20041001, end: 20050401
  2. OMEPRAZOLE [Suspect]
     Indication: ABDOMINAL PAIN UPPER
     Route: 048
     Dates: start: 20041001, end: 20050401
  3. OMEPRAZOLE [Suspect]
     Route: 048
     Dates: end: 20050421
  4. OMEPRAZOLE [Suspect]
     Route: 048
     Dates: end: 20050421
  5. ASPIRIN [Concomitant]
     Route: 048
  6. LISINOPRIL [Concomitant]
     Dosage: 10 OR 15 MG
     Route: 048
     Dates: start: 20020503, end: 20050401
  7. SIMVASTATIN [Concomitant]
     Route: 048
  8. DOMPERIDONE [Concomitant]
     Route: 048
     Dates: start: 20050404, end: 20050401

REACTIONS (3)
  - HAEMODIALYSIS [None]
  - NEPHRITIS INTERSTITIAL [None]
  - RENAL FAILURE ACUTE [None]
